FAERS Safety Report 5811550-5 (Version None)
Quarter: 2008Q3

REPORT INFORMATION
  Report Type: 
  Country: None (occurrence: None)
  Receive Date: 20080714
  Receipt Date: 20080701
  Transmission Date: 20090109
  Serious: No
  Sender: FDA-Public Use
  Company Number: 001754

PATIENT
  Age: 18 Year
  Sex: Female

DRUGS (7)
  1. BUSULFEX [Suspect]
     Indication: STEM CELL TRANSPLANT
     Dosage: 13 ML, DAILY DOSE; 26 ML, DAILY DOSE
     Dates: start: 20070618, end: 20070618
  2. BUSULFEX [Suspect]
     Indication: STEM CELL TRANSPLANT
     Dosage: 13 ML, DAILY DOSE; 26 ML, DAILY DOSE
     Dates: start: 20070619, end: 20070621
  3. BUSULFEX [Suspect]
     Indication: STEM CELL TRANSPLANT
     Dosage: 13 ML, DAILY DOSE; 26 ML, DAILY DOSE
     Dates: start: 20070622, end: 20070622
  4. VALPROATE SODIUM [Concomitant]
  5. MELPHALAN (MELPHALAN) [Concomitant]
  6. FILGRASTIM (FILGRASTIM) [Concomitant]
  7. CYCLOSPORINE [Concomitant]

REACTIONS (8)
  - ANOREXIA [None]
  - DIARRHOEA [None]
  - MALAISE [None]
  - SEPSIS [None]
  - STEM CELL TRANSPLANT [None]
  - STOMATITIS [None]
  - THROMBOTIC MICROANGIOPATHY [None]
  - VENOOCCLUSIVE LIVER DISEASE [None]
